FAERS Safety Report 13045621 (Version 3)
Quarter: 2017Q1

REPORT INFORMATION
  Report Type: Spontaneous
  Country: JP (occurrence: JP)
  Receive Date: 20161220
  Receipt Date: 20170117
  Transmission Date: 20170428
  Serious: Yes (Death, Hospitalization, Other)
  Sender: FDA-Public Use
  Company Number: PHJP2016JP029440

PATIENT
  Age: 83 Year
  Sex: Male

DRUGS (4)
  1. REVOLADE [Suspect]
     Active Substance: ELTROMBOPAG
     Indication: IMMUNE THROMBOCYTOPENIC PURPURA
     Dosage: 50 MG, QD
     Route: 048
     Dates: start: 20150330
  2. REVOLADE [Suspect]
     Active Substance: ELTROMBOPAG
     Dosage: 25 MG, QD
     Route: 048
  3. REVOLADE [Suspect]
     Active Substance: ELTROMBOPAG
     Dosage: 12.5 MG, QD
     Route: 048
  4. REVOLADE [Suspect]
     Active Substance: ELTROMBOPAG
     Dosage: 50 MG, QD
     Route: 048
     Dates: end: 20150824

REACTIONS (4)
  - Pneumonia aspiration [Fatal]
  - Platelet count decreased [Recovered/Resolved]
  - Petechiae [Recovered/Resolved]
  - Gingival bleeding [Unknown]

NARRATIVE: CASE EVENT DATE: 201609
